FAERS Safety Report 8788638 (Version 1)
Quarter: 2012Q4

REPORT INFORMATION
  Report Type: 
  Country: TW (occurrence: TW)
  Receive Date: 20120917
  Receipt Date: 20120917
  Transmission Date: 20130627
  Serious: Yes (Hospitalization)
  Sender: FDA-Public Use
  Company Number: TW-JNJFOC-20120905625

PATIENT
  Age: 66 Year
  Sex: Female

DRUGS (1)
  1. ULTRACET [Suspect]
     Indication: PAIN MANAGEMENT
     Dosage: stop date 6-FEB
     Route: 065
     Dates: start: 20110513

REACTIONS (8)
  - Head injury [Recovering/Resolving]
  - Fall [Recovering/Resolving]
  - Headache [Recovering/Resolving]
  - Arthralgia [Recovering/Resolving]
  - Chest pain [Recovering/Resolving]
  - Nausea [Recovering/Resolving]
  - Vomiting [Recovering/Resolving]
  - Gait disturbance [Recovering/Resolving]
